FAERS Safety Report 16101036 (Version 1)
Quarter: 2019Q1

REPORT INFORMATION
  Report Type: Spontaneous
  Country: US (occurrence: US)
  Receive Date: 20190321
  Receipt Date: 20190321
  Transmission Date: 20190418
  Serious: Yes (Other)
  Sender: FDA-Public Use
  Company Number: US-BAYER-2019-054640

PATIENT
  Age: 53 Year
  Sex: Female

DRUGS (7)
  1. BAYER ASPIRIN [Suspect]
     Active Substance: ASPIRIN
     Dosage: UNK
  2. RISPERIDONE. [Concomitant]
     Active Substance: RISPERIDONE
  3. VITAMIN D [Concomitant]
     Active Substance: CHOLECALCIFEROL
  4. NORMAL SALINE [Concomitant]
     Active Substance: SODIUM CHLORIDE
     Indication: LAPAROTOMY
     Dosage: 500 ML
     Route: 042
  5. DIVALPROEX [Concomitant]
     Active Substance: DIVALPROEX SODIUM
  6. DESMOPRESSIN [Concomitant]
     Active Substance: DESMOPRESSIN
     Indication: BLOOD SODIUM INCREASED
     Dosage: 2 ?G, TWICE
     Route: 042
  7. PHENYLEPHRINE [Concomitant]
     Active Substance: PHENYLEPHRINE\PHENYLEPHRINE HYDROCHLORIDE
     Route: 042

REACTIONS (1)
  - Procedural haemorrhage [None]
